FAERS Safety Report 7322074-0 (Version None)
Quarter: 2011Q1

REPORT INFORMATION
  Report Type: 
  Country: None (occurrence: None)
  Receive Date: 20110228
  Receipt Date: 20110216
  Transmission Date: 20110831
  Serious: Yes (Other)
  Sender: FDA-Public Use
  Company Number: PHHY2011IT05036

PATIENT
  Sex: Female

DRUGS (5)
  1. ZOMETA [Suspect]
     Dosage: UNK
     Dates: start: 20101103
  2. ZOMETA [Suspect]
     Indication: METASTASES TO BONE
     Dosage: UNK
     Dates: start: 20081201, end: 20090901
  3. ZOMETA [Suspect]
     Dosage: UNK
     Dates: start: 20100501
  4. FEMARA [Concomitant]
     Indication: BREAST CANCER
     Dosage: 2.5 MG, UNK
     Route: 048
     Dates: start: 20081201
  5. ZOMETA [Suspect]
     Dosage: 4 MG/ 5ML
     Route: 042
     Dates: start: 20110113

REACTIONS (5)
  - TRANSIENT ISCHAEMIC ATTACK [None]
  - CEREBRAL ISCHAEMIA [None]
  - HYPERTENSION [None]
  - LOSS OF CONSCIOUSNESS [None]
  - MUSCULAR WEAKNESS [None]
